FAERS Safety Report 4976363-5 (Version None)
Quarter: 2006Q2

REPORT INFORMATION
  Report Type: 
  Country: None (occurrence: None)
  Receive Date: 20060412
  Receipt Date: 20060330
  Transmission Date: 20061013
  Serious: Yes (Life-Threatening)
  Sender: FDA-Public Use
  Company Number: 2006045332

PATIENT
  Age: 35 Year
  Sex: Male

DRUGS (2)
  1. SULPERAZON                      (SULBACTAM, CEFOPERAZONE) [Suspect]
     Indication: CHOLANGITIS
     Dosage: INTRAVENOUS
     Route: 042
  2. STRONG NEO-MINOPHAGEN C                   (AMINOACETIC ACID, CYSTEINE, [Concomitant]

REACTIONS (2)
  - LOSS OF CONSCIOUSNESS [None]
  - SHOCK [None]
